FAERS Safety Report 6614555-X (Version None)
Quarter: 2010Q1

REPORT INFORMATION
  Report Type: 
  Country: None (occurrence: None)
  Receive Date: 20100304
  Receipt Date: 20100301
  Transmission Date: 20100710
  Serious: Yes (Hospitalization)
  Sender: FDA-Public Use
  Company Number: US-GILEAD-2010-0027375

PATIENT
  Sex: Female
  Weight: 67.192 kg

DRUGS (17)
  1. LETAIRIS [Suspect]
     Indication: PULMONARY ARTERIAL HYPERTENSION
     Route: 048
     Dates: start: 20090730
  2. REVATIO [Concomitant]
  3. COUMADIN [Concomitant]
  4. FUROSEMIDE [Concomitant]
  5. SPIRONOLACTONE [Concomitant]
  6. DIGITEK [Concomitant]
  7. METOCLOPRAMIDE HYDROCHLORIDE [Concomitant]
  8. TEMAZEPAM [Concomitant]
  9. TYLENOL-500 [Concomitant]
  10. LEVOTHROID [Concomitant]
  11. PROCHLORPERAZINE [Concomitant]
  12. FELODIPINE [Concomitant]
  13. LOPERAMIDE [Concomitant]
  14. OMEPRAZOLE [Concomitant]
  15. VICODIN [Concomitant]
  16. K-TAB [Concomitant]
  17. OXYGEN [Concomitant]

REACTIONS (1)
  - TRANSPLANT [None]
